FAERS Safety Report 23267793 (Version 1)
Quarter: 2023Q4

REPORT INFORMATION
  Report Type: Spontaneous
  Country: US (occurrence: None)
  Receive Date: 20231205
  Receipt Date: 20231205
  Transmission Date: 20240109
  Serious: Yes (Other)
  Sender: FDA-Public Use
  Company Number: None

PATIENT
  Age: 58 Year
  Sex: Male
  Weight: 108 kg

DRUGS (1)
  1. CHAPSTICK CLASSIC CHERRY [Suspect]
     Active Substance: PETROLATUM
     Dates: start: 20231205, end: 20231205

REACTIONS (2)
  - Paraesthesia oral [None]
  - Application site reaction [None]

NARRATIVE: CASE EVENT DATE: 20231205
